FAERS Safety Report 7713849-4 (Version None)
Quarter: 2011Q3

REPORT INFORMATION
  Report Type: 
  Country: None (occurrence: None)
  Receive Date: 20110826
  Receipt Date: 20110815
  Transmission Date: 20111222
  Serious: Yes (Hospitalization)
  Sender: FDA-Public Use
  Company Number: JP-MYLANLABS-2011S1017385

PATIENT
  Age: 2 Year
  Sex: Female
  Weight: 11 kg

DRUGS (3)
  1. CLOBAZAM [Concomitant]
     Indication: CONVULSION
     Route: 065
  2. VALPROIC ACID [Suspect]
     Indication: CONVULSION
     Route: 065
  3. CARBAMAZEPINE [Concomitant]
     Indication: CONVULSION
     Route: 065

REACTIONS (4)
  - RENAL TUBULAR DISORDER [None]
  - METABOLIC ACIDOSIS [None]
  - GASTROENTERITIS [None]
  - FANCONI SYNDROME [None]
